FAERS Safety Report 11584591 (Version 3)
Quarter: 2016Q2

REPORT INFORMATION
  Report Type: Report from Study
  Country: JP (occurrence: JP)
  Receive Date: 20151001
  Receipt Date: 20160624
  Transmission Date: 20160815
  Serious: Yes (Hospitalization, Other)
  Sender: FDA-Public Use
  Company Number: JP-INCYTE CORPORATION-2015IN003002

PATIENT
  Age: 70 Year
  Sex: Female
  Weight: 54 kg

DRUGS (2)
  1. JAKAFI [Suspect]
     Active Substance: RUXOLITINIB
     Indication: MYELOFIBROSIS
     Dosage: 20 MG, BID
     Route: 048
     Dates: start: 201412
  2. JAKAFI [Suspect]
     Active Substance: RUXOLITINIB
     Dosage: 20 MG, (50% REDUCTION)
     Route: 048
     Dates: start: 20150821

REACTIONS (11)
  - Pain [Unknown]
  - Oedema [Unknown]
  - Herpes zoster [Unknown]
  - Haematotoxicity [Unknown]
  - Weight increased [Unknown]
  - Abdominal distension [Unknown]
  - Anaemia [Unknown]
  - Platelet count decreased [Unknown]
  - Pyrexia [Unknown]
  - Withdrawal syndrome [Unknown]
  - Abdominal pain [Unknown]

NARRATIVE: CASE EVENT DATE: 20141213
